FAERS Safety Report 4433533-2 (Version None)
Quarter: 2004Q3

REPORT INFORMATION
  Report Type: 
  Country: None (occurrence: None)
  Receive Date: 20040825
  Receipt Date: 20040708
  Transmission Date: 20050211
  Serious: Yes (Other)
  Sender: FDA-Public Use
  Company Number: 1017687-2004-001

PATIENT
  Sex: Female

DRUGS (1)
  1. METOCLOPRAMIDE HCL [Suspect]
     Dosage: 5MG (3 X DAILY) ORAL
     Route: 048
     Dates: start: 20040106

REACTIONS (3)
  - CORNEAL REFLEX DECREASED [None]
  - HYPERHIDROSIS [None]
  - POSTURING [None]
